FAERS Safety Report 17420508 (Version 1)
Quarter: 2020Q1

REPORT INFORMATION
  Report Type: Spontaneous
  Country: VI (occurrence: VI)
  Receive Date: 20200214
  Receipt Date: 20200214
  Transmission Date: 20200409
  Serious: Yes (Other)
  Sender: FDA-Public Use
  Company Number: VI-PFIZER INC-2020066763

PATIENT
  Age: 35 Year
  Sex: Female
  Weight: 95.71 kg

DRUGS (1)
  1. ADVIL [Suspect]
     Active Substance: IBUPROFEN
     Dosage: UNK

REACTIONS (2)
  - Choking [Unknown]
  - Foreign body in respiratory tract [Unknown]
